FAERS Safety Report 15213147 (Version 9)
Quarter: 2019Q4

REPORT INFORMATION
  Report Type: Spontaneous
  Country: US (occurrence: US)
  Receive Date: 20180730
  Receipt Date: 20191023
  Transmission Date: 20200122
  Serious: Yes (Hospitalization, Other)
  Sender: FDA-Public Use
  Company Number: US-PFIZER INC-2018299492

PATIENT
  Age: 79 Year
  Sex: Female
  Weight: 65.77 kg

DRUGS (15)
  1. IBRANCE [Suspect]
     Active Substance: PALBOCICLIB
     Indication: BREAST CANCER METASTATIC
  2. VIMPAT [Concomitant]
     Active Substance: LACOSAMIDE
     Indication: MUSCLE SPASMS
     Dosage: 100MG TWICE A DAY; MORNING AND NIGHT
  3. SYNTHROID [Concomitant]
     Active Substance: LEVOTHYROXINE SODIUM
     Indication: THYROID DISORDER
     Dosage: 125 UG, 1X/DAY
     Route: 048
  4. SYNTHROID [Concomitant]
     Active Substance: LEVOTHYROXINE SODIUM
     Dosage: 100 UG, DAILY
  5. DYMISTA [Concomitant]
     Active Substance: AZELASTINE HYDROCHLORIDE\FLUTICASONE PROPIONATE
     Indication: HYPERSENSITIVITY
     Dosage: TAKES IT EPISODIC, NOT EVERY DAY
  6. IBRANCE [Suspect]
     Active Substance: PALBOCICLIB
     Indication: NIPPLE NEOPLASM
  7. BUTRANS [Concomitant]
     Active Substance: BUPRENORPHINE
     Indication: PAIN
     Dosage: 1 DF, WEEKLY
  8. HYDROXYZINE HCL [Concomitant]
     Active Substance: HYDROXYZINE HYDROCHLORIDE
     Indication: PRURITUS
     Dosage: 25 MG, AS NEEDED
  9. IBRANCE [Suspect]
     Active Substance: PALBOCICLIB
     Indication: BREAST CANCER
     Dosage: 125 MG, CYCLIC (ONE TIME A DAY FOR 21 DAYS ON AND 7 DAYS OFF)
     Route: 048
  10. EXEMESTANE. [Concomitant]
     Active Substance: EXEMESTANE
     Indication: NEOPLASM MALIGNANT
     Dosage: 25MG OVAL YELLOW TABLET ONCE A DAY IN MORNING AFTER EATING
  11. BUPRENORPHINE. [Concomitant]
     Active Substance: BUPRENORPHINE
     Dosage: 15 UG, UNK (PATCH; 15MCG PER HOUR. CHANGES ONCE A WEEK)
  12. LETROZOLE. [Suspect]
     Active Substance: LETROZOLE
     Indication: INVASIVE LOBULAR BREAST CARCINOMA
     Dosage: 25 MG, 1X/DAY
     Route: 048
     Dates: start: 2015, end: 20180718
  13. DIPHEN-ATROP [Concomitant]
     Indication: DIARRHOEA
     Dosage: UNK
  14. OXYCODONE [Concomitant]
     Active Substance: OXYCODONE
     Indication: PAIN
     Dosage: 5-325MG TABLET AS NEEDED (OXYCODONE, GENERIC FOR PERCOCET)
  15. IBRANCE [Suspect]
     Active Substance: PALBOCICLIB
     Indication: INVASIVE LOBULAR BREAST CARCINOMA
     Dosage: 125 MG, CYCLIC (21 DAYS ON, 7 DAYS OFF)
     Route: 048
     Dates: start: 2015

REACTIONS (23)
  - Limb injury [Unknown]
  - Blood pressure increased [Unknown]
  - Cystitis [Unknown]
  - Pneumonia [Recovered/Resolved]
  - Bone disorder [Unknown]
  - Pain in extremity [Not Recovered/Not Resolved]
  - Arthritis [Unknown]
  - Gait disturbance [Unknown]
  - Lymphadenopathy [Unknown]
  - Product dose omission [Unknown]
  - Arthropathy [Not Recovered/Not Resolved]
  - Balance disorder [Unknown]
  - Emotional distress [Unknown]
  - Restlessness [Unknown]
  - Stress [Unknown]
  - Post procedural inflammation [Unknown]
  - Fall [Recovered/Resolved with Sequelae]
  - Alopecia [Not Recovered/Not Resolved]
  - Pruritus [Unknown]
  - Drug hypersensitivity [Unknown]
  - Fatigue [Not Recovered/Not Resolved]
  - Decreased appetite [Unknown]
  - Frustration tolerance decreased [Unknown]

NARRATIVE: CASE EVENT DATE: 2018
